FAERS Safety Report 7338825-5 (Version None)
Quarter: 2011Q1

REPORT INFORMATION
  Report Type: 
  Country: None (occurrence: None)
  Receive Date: 20110308
  Receipt Date: 20110228
  Transmission Date: 20110831
  Serious: Yes (Hospitalization)
  Sender: FDA-Public Use
  Company Number: JP-MERCK-1010USA02802

PATIENT
  Age: 74 Year
  Sex: Female

DRUGS (2)
  1. FOSAMAX [Suspect]
     Indication: OSTEOPOROSIS
     Route: 048
     Dates: start: 20020516, end: 20051122
  2. LONGES [Concomitant]
     Indication: HYPERTENSION
     Route: 048
     Dates: start: 19980623

REACTIONS (1)
  - FEMUR FRACTURE [None]
